FAERS Safety Report 14615519 (Version 2)
Quarter: 2018Q1

REPORT INFORMATION
  Report Type: Report from Study
  Country: None (occurrence: ES)
  Receive Date: 20180308
  Receipt Date: 20180309
  Transmission Date: 20180509
  Serious: Yes (Death)
  Sender: FDA-Public Use
  Company Number: ES-ABBVIE-18K-144-2278343-00

PATIENT
  Age: 85 Year
  Sex: Female
  Weight: 68 kg

DRUGS (1)
  1. DUODOPA [Suspect]
     Active Substance: CARBIDOPA\LEVODOPA
     Indication: PARKINSON^S DISEASE
     Route: 050
     Dates: start: 20170518

REACTIONS (4)
  - Gait inability [Unknown]
  - Cardio-respiratory arrest [Fatal]
  - Lethargy [Fatal]
  - Freezing phenomenon [Fatal]

NARRATIVE: CASE EVENT DATE: 20180304
